FAERS Safety Report 5432150-5 (Version None)
Quarter: 2007Q3

REPORT INFORMATION
  Report Type: 
  Country: None (occurrence: None)
  Receive Date: 20070830
  Receipt Date: 20070809
  Transmission Date: 20080115
  Serious: Yes (Death, Hospitalization)
  Sender: FDA-Public Use
  Company Number: BR-PFIZER INC-2007053138

PATIENT
  Sex: Male
  Weight: 74.4 kg

DRUGS (7)
  1. SU-011,248 [Suspect]
     Indication: METASTATIC RENAL CELL CARCINOMA
  2. DIOSMIN [Concomitant]
     Route: 048
  3. MULTI-VITAMINS [Concomitant]
     Route: 048
  4. METOCLOPRAMIDE [Concomitant]
     Route: 048
  5. PROCTYL [Concomitant]
     Route: 054
  6. ALLOPURINOL [Concomitant]
     Route: 048
  7. OMEPRAZOLE [Concomitant]
     Route: 048

REACTIONS (3)
  - DEATH [None]
  - NECROTISING FASCIITIS [None]
  - PERIRECTAL ABSCESS [None]
